FAERS Safety Report 7339908-6 (Version None)
Quarter: 2011Q1

REPORT INFORMATION
  Report Type: 
  Country: None (occurrence: None)
  Receive Date: 20110228
  Receipt Date: 20110217
  Transmission Date: 20110831
  Serious: Yes (Disabling, Other)
  Sender: FDA-Public Use
  Company Number: 2007-01760

PATIENT
  Age: 53 Year
  Sex: Female
  Weight: 66 kg

DRUGS (4)
  1. ADRIAMYCIN (DOXORUBICIN) SOLUTION FOR INJECTION/INFUSION [Suspect]
     Indication: MULTIPLE MYELOMA
     Dosage: 16 MG, INTRAVENOUS
     Route: 042
     Dates: start: 20061227
  2. DEXAMETHASONE TAB [Suspect]
     Indication: MULTIPLE MYELOMA
     Dosage: 40 MG, ORAL
     Route: 048
     Dates: start: 20061227
  3. FLOXACILLIN SODIUM [Concomitant]
  4. VELCADE [Suspect]
     Indication: MULTIPLE MYELOMA
     Dosage: 2.5 MG, INTRAVENOUS
     Route: 042
     Dates: start: 20061227

REACTIONS (4)
  - NEUROLOGICAL SYMPTOM [None]
  - NEUTROPENIA [None]
  - CONDITION AGGRAVATED [None]
  - PERIPHERAL SENSORY NEUROPATHY [None]
